FAERS Safety Report 22007262 (Version 1)
Quarter: 2023Q1

REPORT INFORMATION
  Report Type: Report from Study
  Country: US (occurrence: US)
  Receive Date: 20230217
  Receipt Date: 20230217
  Transmission Date: 20230417
  Serious: Yes (Other)
  Sender: FDA-Public Use
  Company Number: US-ABBVIE-4307267

PATIENT
  Age: 21 Year
  Sex: Female

DRUGS (1)
  1. ORILISSA [Suspect]
     Active Substance: ELAGOLIX SODIUM
     Indication: Product used for unknown indication
     Route: 048
     Dates: start: 20220915

REACTIONS (6)
  - Uterine haemorrhage [Recovering/Resolving]
  - Vomiting [Not Recovered/Not Resolved]
  - Polymenorrhoea [Unknown]
  - Endometriosis [Unknown]
  - Muscle spasms [Unknown]
  - Therapeutic product effect incomplete [Unknown]

NARRATIVE: CASE EVENT DATE: 20220915
